FAERS Safety Report 4551393-6 (Version None)
Quarter: 2005Q1

REPORT INFORMATION
  Report Type: 
  Country: None (occurrence: None)
  Receive Date: 20050113
  Receipt Date: 20041228
  Transmission Date: 20050727
  Serious: Yes (Death)
  Sender: FDA-Public Use
  Company Number: JP-BRISTOL-MYERS SQUIBB COMPANY-12807400

PATIENT
  Age: 66 Year
  Sex: Male

DRUGS (9)
  1. TAXOL [Suspect]
     Indication: LUNG NEOPLASM MALIGNANT
     Route: 041
     Dates: start: 20041206, end: 20041206
  2. PARAPLATIN [Suspect]
     Indication: NON-SMALL CELL LUNG CANCER
     Route: 041
     Dates: start: 20041122, end: 20041122
  3. GASTER D [Concomitant]
     Route: 048
     Dates: start: 20040917, end: 20041220
  4. GASTROM [Concomitant]
     Route: 048
     Dates: start: 20040917, end: 20041220
  5. MUCOSOLVAN [Concomitant]
     Route: 048
     Dates: start: 20040917, end: 20041220
  6. MEVALOTIN [Concomitant]
     Route: 048
     Dates: start: 20040917, end: 20041220
  7. URINORM [Concomitant]
     Route: 048
     Dates: start: 20040917, end: 20041220
  8. MICARDIS [Concomitant]
     Route: 048
     Dates: start: 20040917, end: 20041220
  9. HOKUNALIN [Concomitant]
     Route: 062
     Dates: start: 20040917, end: 20041220

REACTIONS (1)
  - INTERSTITIAL LUNG DISEASE [None]
